FAERS Safety Report 7345744-7 (Version None)
Quarter: 2011Q1

REPORT INFORMATION
  Report Type: 
  Country: None (occurrence: None)
  Receive Date: 20110308
  Receipt Date: 20110308
  Transmission Date: 20110831
  Serious: Yes (Other)
  Sender: FDA-Public Use
  Company Number: None

PATIENT
  Age: 72 Year
  Sex: Female
  Weight: 77.1115 kg

DRUGS (1)
  1. MELOXICAM [Suspect]
     Indication: OSTEOARTHRITIS
     Dosage: 7.5 MG 1 X PO
     Route: 048
     Dates: start: 20110127, end: 20110128

REACTIONS (2)
  - BLOOD PRESSURE SYSTOLIC INCREASED [None]
  - EYE PAIN [None]
